FAERS Safety Report 9177899 (Version 3)
Quarter: 2012Q4

REPORT INFORMATION
  Report Type: 
  Country: US (occurrence: US)
  Receive Date: 20121010
  Receipt Date: 20121120
  Transmission Date: 20130627
  Serious: Yes (Death, Life-Threatening, Hospitalization, Other)
  Sender: FDA-Public Use
  Company Number: US-CTI_01489_2012

PATIENT
  Age: 0 None
  Sex: Male
  Weight: 1.19 kg

DRUGS (1)
  1. CUROSURF [Suspect]
     Indication: RESPIRATORY DISTRESS
     Dosage: DF

REACTIONS (3)
  - Necrotising colitis [Fatal]
  - Peritonitis bacterial [Unknown]
  - Death neonatal [None]
